FAERS Safety Report 7812577-4 (Version None)
Quarter: 2011Q4

REPORT INFORMATION
  Report Type: 
  Country: None (occurrence: None)
  Receive Date: 20111013
  Receipt Date: 20111003
  Transmission Date: 20120403
  Serious: Yes (Hospitalization, Other)
  Sender: FDA-Public Use
  Company Number: US-BAYER-2010-006442

PATIENT
  Age: 38 Year
  Sex: Female
  Weight: 163 kg

DRUGS (11)
  1. PROMETHAZINE [Concomitant]
     Dosage: 25 MG, UNK
  2. PAMELOR [Concomitant]
     Dosage: 50 MG, UNK
  3. YASMIN [Suspect]
     Indication: ORAL CONTRACEPTION
     Dosage: UNK
     Dates: start: 19970101, end: 20080101
  4. IMITREX [Concomitant]
     Dosage: UNK
     Dates: start: 19960101
  5. MOTRIN [Concomitant]
     Dosage: UNK
     Dates: start: 19960101
  6. TRAMADOL HCL [Concomitant]
     Dosage: 50 MG, UNK
     Route: 048
  7. NORCO [Concomitant]
  8. MORPHINE [Concomitant]
     Dosage: 60 MG, UNK
  9. VALIUM [Concomitant]
     Dosage: 10 MG, UNK
  10. YASMIN [Suspect]
     Indication: MENSTRUAL DISORDER
  11. FLEXERIL [Concomitant]
     Dosage: 10 MG, UNK

REACTIONS (8)
  - CHOLELITHIASIS [None]
  - PAIN [None]
  - FEAR [None]
  - CHOLECYSTITIS [None]
  - ABDOMINAL PAIN [None]
  - INJURY [None]
  - EMOTIONAL DISTRESS [None]
  - ANXIETY [None]
